FAERS Safety Report 16702920 (Version 1)
Quarter: 2019Q3

REPORT INFORMATION
  Report Type: Spontaneous
  Country: US (occurrence: US)
  Receive Date: 20190814
  Receipt Date: 20190814
  Transmission Date: 20191004
  Serious: No
  Sender: FDA-Public Use
  Company Number: US-VERTEX PHARMACEUTICALS-2019-007482

PATIENT
  Sex: Female

DRUGS (6)
  1. CAL CITRATE [Concomitant]
  2. PANCREAZE [Concomitant]
     Active Substance: PANCRELIPASE AMYLASE\PANCRELIPASE LIPASE\PANCRELIPASE PROTEASE
  3. SODIUM CHLORIDE. [Concomitant]
     Active Substance: SODIUM CHLORIDE
  4. CAYSTON [Concomitant]
     Active Substance: AZTREONAM
  5. KALYDECO [Suspect]
     Active Substance: IVACAFTOR
     Indication: CYSTIC FIBROSIS
     Dosage: 150 MILLIGRAM, BID
     Route: 048
     Dates: start: 20150110
  6. ALTERRA [Concomitant]

REACTIONS (1)
  - Arthralgia [Unknown]
